FAERS Safety Report 11557605 (Version 1)
Quarter: 2015Q3

REPORT INFORMATION
  Report Type: Report from Study
  Country: MY (occurrence: MY)
  Receive Date: 20150926
  Receipt Date: 20150926
  Transmission Date: 20151125
  Serious: Yes (Death, Hospitalization, Other)
  Sender: FDA-Public Use
  Company Number: PHHY2015MY113992

PATIENT
  Sex: Female

DRUGS (1)
  1. GLIVEC [Suspect]
     Active Substance: IMATINIB MESYLATE
     Indication: CHRONIC MYELOID LEUKAEMIA
     Dosage: 400 MG, UNK
     Route: 065

REACTIONS (9)
  - General physical health deterioration [Unknown]
  - Vaginal haemorrhage [Not Recovered/Not Resolved]
  - Malaise [Unknown]
  - Chronic myeloid leukaemia transformation [Unknown]
  - Platelet count decreased [Unknown]
  - Death [Fatal]
  - Haemoglobin decreased [Unknown]
  - Central nervous system leukaemia [Unknown]
  - Hypophagia [Unknown]
